FAERS Safety Report 18027808 (Version 1)
Quarter: 2020Q3

REPORT INFORMATION
  Report Type: Spontaneous
  Country: AT (occurrence: AT)
  Receive Date: 20200715
  Receipt Date: 20200715
  Transmission Date: 20201103
  Serious: Yes (Other)
  Sender: FDA-Public Use
  Company Number: AT-JNJFOC-20200707490

PATIENT
  Age: 85 Year
  Sex: Female

DRUGS (2)
  1. NOVALGIN [Concomitant]
     Indication: OSTEOARTHRITIS
  2. RIVAROXABAN [Suspect]
     Active Substance: RIVAROXABAN
     Indication: ATRIAL FIBRILLATION
     Dosage: 15 MG
     Route: 048
     Dates: start: 2019

REACTIONS (6)
  - Drug intolerance [Unknown]
  - Haemarthrosis [Unknown]
  - Joint swelling [Unknown]
  - Impaired healing [Unknown]
  - Traumatic haematoma [Unknown]
  - Syncope [Unknown]
